FAERS Safety Report 6626527-X (Version None)
Quarter: 2010Q1

REPORT INFORMATION
  Report Type: 
  Country: None (occurrence: None)
  Receive Date: 20100310
  Receipt Date: 20100302
  Transmission Date: 20100710
  Serious: Yes (Other)
  Sender: FDA-Public Use
  Company Number: US-JNJCH-2010005549

PATIENT
  Age: 54 Year
  Sex: Female
  Weight: 95.3 kg

DRUGS (2)
  1. ROLAIDS [Suspect]
     Indication: GASTROOESOPHAGEAL REFLUX DISEASE
     Dosage: TEXT:1 TABLET 2-4 TIMES NIGHTLY
     Route: 048
  2. PREVACID [Concomitant]
     Indication: GASTROOESOPHAGEAL REFLUX DISEASE
     Dosage: TEXT:UNSPECIFIED
     Route: 065

REACTIONS (2)
  - DEPENDENCE [None]
  - OFF LABEL USE [None]
